FAERS Safety Report 12640071 (Version 1)
Quarter: 2016Q3

REPORT INFORMATION
  Report Type: Spontaneous
  Country: US (occurrence: None)
  Receive Date: 20160809
  Receipt Date: 20160809
  Transmission Date: 20161109
  Serious: Yes (Hospitalization)
  Sender: FDA-Public Use
  Company Number: None

PATIENT
  Age: 60 Year
  Sex: Male
  Weight: 77.2 kg

DRUGS (9)
  1. YERVOY [Suspect]
     Active Substance: IPILIMUMAB
     Indication: MALIGNANT MELANOMA STAGE III
     Route: 041
     Dates: start: 20160518, end: 20160721
  2. YERVOY [Suspect]
     Active Substance: IPILIMUMAB
     Indication: MALIGNANT MELANOMA STAGE III
     Route: 041
     Dates: start: 20160518, end: 20160721
  3. TYLENOL [Concomitant]
     Active Substance: ACETAMINOPHEN
  4. CRUCERA (BROCCOLI SPROUT) [Concomitant]
  5. CURCUMIN [Concomitant]
     Active Substance: CURCUMIN
  6. VITAMIN C [Concomitant]
     Active Substance: ASCORBIC ACID
  7. IBUPROFEN. [Concomitant]
     Active Substance: IBUPROFEN
  8. DIETARY SUPPLEMENTS [Concomitant]
     Active Substance: DIETARY SUPPLEMENT
  9. BENADRYL [Concomitant]
     Active Substance: DIPHENHYDRAMINE HYDROCHLORIDE

REACTIONS (6)
  - Blood thyroid stimulating hormone decreased [None]
  - Blood corticotrophin decreased [None]
  - Inappropriate antidiuretic hormone secretion [None]
  - Hypophysitis [None]
  - Blood cortisol decreased [None]
  - Blood testosterone decreased [None]

NARRATIVE: CASE EVENT DATE: 20160802
